FAERS Safety Report 8763268 (Version 2)
Quarter: 2013Q1

REPORT INFORMATION
  Report Type: Spontaneous
  Country: None (occurrence: None)
  Receive Date: 20120827
  Receipt Date: 20130125
  Transmission Date: 20140127
  Serious: Yes (Hospitalization)
  Sender: FDA-Public Use
  Company Number: AUR-APL-2012-03596

PATIENT
  Age: 61 Year
  Sex: Female
  Weight: 51 kg

DRUGS (3)
  1. ALENDRONIC ACID [Suspect]
     Indication: OSTEOPOROSIS
     Route: 048
     Dates: end: 20120714
  2. ADCAL-D3 (LEKOVIT CA) [Concomitant]
  3. CO-CODAMOL (PANADEINE CO) [Concomitant]

REACTIONS (3)
  - Haematemesis [None]
  - Rectal haemorrhage [None]
  - Duodenal perforation [None]
